FAERS Safety Report 5877186-5 (Version None)
Quarter: 2008Q3

REPORT INFORMATION
  Report Type: 
  Country: None (occurrence: None)
  Receive Date: 20080910
  Receipt Date: 20080829
  Transmission Date: 20090109
  Serious: Yes (Other)
  Sender: FDA-Public Use
  Company Number: US-PFIZER INC-2008073264

PATIENT
  Sex: Male
  Weight: 81.6 kg

DRUGS (3)
  1. AZITHROMYCIN [Suspect]
     Indication: RESPIRATORY DISORDER
     Dates: start: 20020101
  2. AZITHROMYCIN [Suspect]
     Indication: ARTHRITIS
     Dates: start: 20080601
  3. NAPROSYN [Concomitant]

REACTIONS (6)
  - AGEUSIA [None]
  - ANAEMIA [None]
  - ANOSMIA [None]
  - EATING DISORDER [None]
  - PHARYNGITIS [None]
  - WEIGHT DECREASED [None]
